FAERS Safety Report 14516811 (Version 1)
Quarter: 2018Q1

REPORT INFORMATION
  Report Type: Spontaneous
  Country: US (occurrence: US)
  Receive Date: 20180212
  Receipt Date: 20180212
  Transmission Date: 20180509
  Serious: Yes (Other)
  Sender: FDA-Public Use
  Company Number: US-AMGEN-USASP2018019211

PATIENT
  Age: 63 Year
  Sex: Female

DRUGS (6)
  1. ARIMIDEX [Concomitant]
     Active Substance: ANASTROZOLE
     Dosage: UNK
  2. FILGRASTIM [Suspect]
     Active Substance: FILGRASTIM
     Indication: BREAST CANCER
     Dosage: UNK
     Route: 065
  3. BEVACIZUMAB. [Suspect]
     Active Substance: BEVACIZUMAB
     Indication: BREAST CANCER
     Dosage: 1305 MG, CYCLICAL (30-90 MIN ON DAY 1, CYCLE=21 DAYS (CYCLES 9-18)
     Route: 042
     Dates: start: 20090827
  4. DOXORUBICIN [Suspect]
     Active Substance: DOXORUBICIN
     Indication: BREAST CANCER
     Dosage: UNK
     Route: 042
     Dates: start: 20090827, end: 20091008
  5. CYCLOPHOSPHAMIDE. [Suspect]
     Active Substance: CYCLOPHOSPHAMIDE
     Indication: BREAST CANCER
     Dosage: UNK
     Route: 042
  6. PACLITAXEL. [Suspect]
     Active Substance: PACLITAXEL
     Indication: BREAST CANCER
     Dosage: UNK
     Route: 042
     Dates: end: 20100210

REACTIONS (1)
  - Thermal burn [Unknown]

NARRATIVE: CASE EVENT DATE: 20100415
